FAERS Safety Report 14216562 (Version 4)
Quarter: 2025Q4

REPORT INFORMATION
  Report Type: Spontaneous
  Country: EU (occurrence: EU)
  Receive Date: 20171122
  Receipt Date: 20251118
  Transmission Date: 20260117
  Serious: Yes (Other)
  Sender: TEVA
  Company Number: EU-TEVA-2017-IT-826306

PATIENT
  Age: 47 Year
  Sex: Female

DRUGS (3)
  1. DOCETAXEL [Suspect]
     Active Substance: DOCETAXEL
     Indication: Breast cancer
     Dosage: TIME INTERVAL: CYCLICAL
     Route: 042
     Dates: start: 20160107, end: 20170526
  2. HERCEPTIN [Suspect]
     Active Substance: TRASTUZUMAB
     Indication: Breast cancer
     Dosage: TIME INTERVAL: CYCLICAL
     Route: 042
     Dates: start: 20160107, end: 20170526
  3. PERTUZUMAB [Suspect]
     Active Substance: PERTUZUMAB
     Indication: Breast cancer
     Dosage: TIME INTERVAL: CYCLICAL
     Route: 042
     Dates: start: 20161212, end: 20170526

REACTIONS (5)
  - Hyperpyrexia [Recovered/Resolved]
  - Breast pain [Recovered/Resolved]
  - Asthenia [Recovered/Resolved]
  - Pain [Recovered/Resolved]
  - Pyrexia [Recovered/Resolved]

NARRATIVE: CASE EVENT DATE: 20170324
